FAERS Safety Report 7788033-9 (Version None)
Quarter: 2011Q3

REPORT INFORMATION
  Report Type: 
  Country: None (occurrence: None)
  Receive Date: 20110927
  Receipt Date: 20110917
  Transmission Date: 20111222
  Serious: Yes (Hospitalization, Other)
  Sender: FDA-Public Use
  Company Number: AUR-APL-2011-04522

PATIENT
  Age: 88 Year
  Sex: Female

DRUGS (7)
  1. GLIMEPIRIDE [Concomitant]
  2. ATACAND HCT [Concomitant]
  3. METFORMIN HCL [Suspect]
     Indication: TYPE 2 DIABETES MELLITUS
     Dosage: 1000 MG (500 MG, 2 IN 1 D), ORAL
     Route: 048
     Dates: end: 20110714
  4. LORATIDIN (LORATADINE) [Concomitant]
  5. SPIRONOLACTONE [Suspect]
     Indication: PRODUCT USED FOR UNKNOWN INDICATION
     Dosage: 50 MG (50 MG, 1 IN 1 D), ORAL
     Route: 048
     Dates: end: 20110715
  6. ZOPICLONE (ZOPICLONE) [Concomitant]
  7. ASPIRIN [Suspect]
     Indication: PRODUCT USED FOR UNKNOWN INDICATION
     Dosage: 75 MG (75 MG, 1 IN 1 D), ORAL
     Route: 048

REACTIONS (6)
  - NAUSEA [None]
  - DEHYDRATION [None]
  - DUODENAL ULCER [None]
  - OCCULT BLOOD POSITIVE [None]
  - VOMITING [None]
  - HELICOBACTER TEST POSITIVE [None]
